FAERS Safety Report 9408642 (Version 3)
Quarter: 2013Q3

REPORT INFORMATION
  Report Type: Spontaneous
  Country: US (occurrence: US)
  Receive Date: 20130718
  Receipt Date: 20130903
  Transmission Date: 20140515
  Serious: Yes (Other)
  Sender: FDA-Public Use
  Company Number: US-ALLERGAN-1310241US

PATIENT
  Age: 82 Year
  Sex: Female
  Weight: 59.41 kg

DRUGS (4)
  1. LUMIGAN [Suspect]
     Indication: PRODUCT USED FOR UNKNOWN INDICATION
     Dosage: 1 GTT, QHS
     Dates: start: 20120621, end: 20121001
  2. LATANOPROST [Suspect]
     Indication: PRODUCT USED FOR UNKNOWN INDICATION
  3. TIMOLOL MALEATE [Concomitant]
     Indication: PRODUCT USED FOR UNKNOWN INDICATION
     Dosage: UNK UNK, QAM
  4. XALATAN [Concomitant]
     Indication: GLAUCOMA
     Dosage: UNK UNK, QHS
     Dates: start: 201201

REACTIONS (10)
  - Breast cancer [Unknown]
  - Weight increased [Unknown]
  - Drug hypersensitivity [Unknown]
  - Intraocular pressure increased [Unknown]
  - Abnormal sensation in eye [Unknown]
  - Ocular icterus [Unknown]
  - Asthenia [Unknown]
  - Ocular hyperaemia [Unknown]
  - Erythema of eyelid [Recovered/Resolved]
  - Eye irritation [Recovered/Resolved]
